FAERS Safety Report 10164041 (Version 1)
Quarter: 2014Q2

REPORT INFORMATION
  Report Type: Spontaneous
  Country: US (occurrence: US)
  Receive Date: 20140510
  Receipt Date: 20140510
  Transmission Date: 20141212
  Serious: No
  Sender: FDA-Public Use
  Company Number: US-BRISTOL-MYERS SQUIBB COMPANY-19847136

PATIENT
  Sex: Male

DRUGS (4)
  1. BYETTA [Suspect]
     Indication: TYPE 2 DIABETES MELLITUS
     Route: 058
     Dates: start: 20131120
  2. METFORMIN HCL [Suspect]
  3. GLIMEPIRIDE [Suspect]
  4. LEVEMIR [Suspect]

REACTIONS (1)
  - Drug ineffective [Unknown]
